FAERS Safety Report 4707169-X (Version None)
Quarter: 2005Q3

REPORT INFORMATION
  Report Type: 
  Country: None (occurrence: None)
  Receive Date: 20050706
  Receipt Date: 20050623
  Transmission Date: 20060218
  Serious: Yes (Hospitalization)
  Sender: FDA-Public Use
  Company Number: JP-JNJFOC-20050507451

PATIENT
  Sex: Female
  Weight: 62 kg

DRUGS (8)
  1. REMICADE [Suspect]
     Route: 042
  2. REMICADE [Suspect]
     Indication: RHEUMATOID ARTHRITIS
     Route: 042
  3. RHEUMATREX [Suspect]
     Indication: RHEUMATOID ARTHRITIS
     Route: 049
  4. PREDNISOLONE [Suspect]
     Indication: RHEUMATOID ARTHRITIS
     Route: 049
  5. ISONIAZID [Concomitant]
     Route: 049
  6. ISONIAZID [Concomitant]
     Indication: TUBERCULOSIS PROPHYLAXIS
     Route: 049
  7. ADRENAL HORMONE PREPARTIONS [Concomitant]
     Indication: RHEUMATOID ARTHRITIS
  8. FOLIAMIN [Concomitant]
     Route: 049

REACTIONS (1)
  - PNEUMOCYSTIS JIROVECI PNEUMONIA [None]
